FAERS Safety Report 23687289 (Version 1)
Quarter: 2024Q1

REPORT INFORMATION
  Report Type: Spontaneous
  Country: FR (occurrence: FR)
  Receive Date: 20240329
  Receipt Date: 20240329
  Transmission Date: 20240409
  Serious: Yes (Hospitalization, Other)
  Sender: FDA-Public Use
  Company Number: None

PATIENT
  Age: 64 Year
  Sex: Female
  Weight: 57 kg

DRUGS (17)
  1. CYCLOPHOSPHAMIDE [Suspect]
     Active Substance: CYCLOPHOSPHAMIDE
     Indication: Plasma cell myeloma
     Dosage: 0.3 UNK,0.30 MG/KG OR 18 MG
     Route: 042
  2. DOXORUBICIN HYDROCHLORIDE [Suspect]
     Active Substance: DOXORUBICIN HYDROCHLORIDE
     Indication: Plasma cell myeloma
     Dosage: ONE DOSE EVERY 2 WEEKS THE LAST DOSE ADMINISTERED ON 02-JAN-2024
     Route: 042
     Dates: end: 202212
  3. TECVAYLI [Suspect]
     Active Substance: TECLISTAMAB-CQYV
     Dosage: 0.06 MG/KG OR 3.5 MGEIGHTH LINE: C1
     Route: 042
     Dates: start: 20230124
  4. TECVAYLI [Suspect]
     Active Substance: TECLISTAMAB-CQYV
     Dosage: 0.30 MG/KG OR 18 MG
     Route: 042
     Dates: start: 20230126
  5. TECVAYLI [Suspect]
     Active Substance: TECLISTAMAB-CQYV
     Dosage: ONE DOSE EVERY 2 WEEKSTHE LAST DOSE ADMINISTERED ON 02-JAN-2024 (C14).
     Route: 042
     Dates: end: 20240112
  6. TECVAYLI [Suspect]
     Active Substance: TECLISTAMAB-CQYV
     Dosage: 1.5 MG/KG
     Route: 042
     Dates: start: 20230128
  7. TECVAYLI [Suspect]
     Active Substance: TECLISTAMAB-CQYV
     Indication: Plasma cell myeloma
     Dosage: TIW
     Route: 042
     Dates: start: 2024
  8. TECVAYLI [Suspect]
     Active Substance: TECLISTAMAB-CQYV
     Dosage: 8TH LINE OF TREATMENT
     Route: 042
     Dates: start: 20240119
  9. VENETOCLAX [Suspect]
     Active Substance: VENETOCLAX
     Indication: Plasma cell myeloma
     Dosage: 1.5 MG/KG
     Route: 042
  10. VENETOCLAX [Suspect]
     Active Substance: VENETOCLAX
     Dosage: A DAILY DOSE.
     Route: 048
     Dates: start: 20240119
  11. AMLODIPINE [Concomitant]
     Active Substance: AMLODIPINE BESYLATE
     Indication: Product used for unknown indication
     Dosage: 8TH LINE OF TREATMENT
     Route: 042
     Dates: start: 20240109
  12. BACTRIM [Concomitant]
     Active Substance: SULFAMETHOXAZOLE\TRIMETHOPRIM
     Indication: Prophylaxis
     Dosage: BACTRIM 800: 1 TAB ON MONDAYS, WEDNESDAYS, FRIDAYS
     Route: 065
  13. FOLIC ACID [Concomitant]
     Active Substance: FOLIC ACID
     Indication: Product used for unknown indication
     Dosage: 0.06 MG/KG OR 3.5 MG EIGHTH LINE
     Route: 042
     Dates: start: 20230124
  14. IMOVANE [Concomitant]
     Active Substance: ZOPICLONE
     Indication: Product used for unknown indication
     Dosage: IMOVANE 7.5 MG, SCORED FILM-COATED TABLET [ZOPICLONE]
     Route: 065
  15. LEVOTHYROXINE [Concomitant]
     Active Substance: LEVOTHYROXINE\LEVOTHYROXINE SODIUM
     Indication: Autoimmune thyroiditis
     Dosage: 1 TAB ON TUESDAYS, THURSDAYS AND SATURDAYS
     Route: 065
  16. VALACYCLOVIR HYDROCHLORIDE [Concomitant]
     Active Substance: VALACYCLOVIR HYDROCHLORIDE
     Indication: Product used for unknown indication
     Dosage: 1 TAB IN THE MORNING
     Route: 065
  17. ZOMETA [Concomitant]
     Active Substance: ZOLEDRONIC ACID
     Indication: Product used for unknown indication
     Dosage: SEVENTH LINE
     Route: 048
     Dates: start: 202209, end: 202212

REACTIONS (6)
  - Cytokine release syndrome [Unknown]
  - Basal cell carcinoma [Recovering/Resolving]
  - Infection [Unknown]
  - Intentional product use issue [Unknown]
  - Off label use [Unknown]
  - Off label use [Unknown]

NARRATIVE: CASE EVENT DATE: 20231220
